FAERS Safety Report 14717821 (Version 1)
Quarter: 2018Q2

REPORT INFORMATION
  Report Type: Spontaneous
  Country: US (occurrence: US)
  Receive Date: 20180404
  Receipt Date: 20180404
  Transmission Date: 20180711
  Serious: No
  Sender: FDA-Public Use
  Company Number: US-SA-2018SA029386

PATIENT
  Age: 28 Year
  Sex: Female

DRUGS (2)
  1. DUPIXENT [Suspect]
     Active Substance: DUPILUMAB
     Indication: DERMATITIS ATOPIC
     Dosage: DOSE:150 MILLIGRAM(S)/MILLILITRE
     Route: 058
     Dates: start: 201709
  2. DUPIXENT [Suspect]
     Active Substance: DUPILUMAB
     Indication: DERMATITIS ATOPIC
     Dosage: DOSE:150 MILLIGRAM(S)/MILLILITRE
     Route: 058

REACTIONS (6)
  - Lymphocyte count increased [Recovered/Resolved]
  - Pyrexia [Not Recovered/Not Resolved]
  - Unevaluable event [Unknown]
  - Urticaria [Not Recovered/Not Resolved]
  - Diarrhoea [Not Recovered/Not Resolved]
  - Product use issue [Unknown]

NARRATIVE: CASE EVENT DATE: 201709
